FAERS Safety Report 24537836 (Version 1)
Quarter: 2024Q4

REPORT INFORMATION
  Report Type: Spontaneous
  Country: PT (occurrence: PT)
  Receive Date: 20241023
  Receipt Date: 20241023
  Transmission Date: 20250115
  Serious: Yes (Other)
  Sender: ACCORD
  Company Number: None

PATIENT
  Age: 49 Year
  Sex: Male
  Weight: 88 kg

DRUGS (6)
  1. AMLODIPINE [Interacting]
     Active Substance: AMLODIPINE BESYLATE
     Indication: Product used for unknown indication
  2. METFORMIN HYDROCHLORIDE\SITAGLIPTIN [Interacting]
     Active Substance: METFORMIN HYDROCHLORIDE\SITAGLIPTIN
     Indication: Product used for unknown indication
     Dosage: AT LUNCH
  3. ATORVASTATIN [Interacting]
     Active Substance: ATORVASTATIN
     Indication: Dyslipidaemia
     Dosage: 20 MG /DAY
     Dates: start: 20230728, end: 20240729
  4. DAPAGLIFLOZIN\METFORMIN HYDROCHLORIDE [Concomitant]
     Active Substance: DAPAGLIFLOZIN\METFORMIN HYDROCHLORIDE
  5. GLICLAZIDE [Concomitant]
     Active Substance: GLICLAZIDE
     Dates: start: 202408
  6. CANDESARTAN [Concomitant]
     Active Substance: CANDESARTAN
     Dosage: PA

REACTIONS (2)
  - Hepatic function abnormal [Recovering/Resolving]
  - Myopathy [Recovered/Resolved]

NARRATIVE: CASE EVENT DATE: 20240501
